FAERS Safety Report 5942749-5 (Version None)
Quarter: 2008Q4

REPORT INFORMATION
  Report Type: 
  Country: None (occurrence: None)
  Receive Date: 20081103
  Receipt Date: 20081023
  Transmission Date: 20090506
  Serious: Yes (Hospitalization, Other)
  Sender: FDA-Public Use
  Company Number: CHPA2008US18031

PATIENT
  Age: 75 Year
  Sex: Female

DRUGS (8)
  1. BENEFIBER W/ WHEAT DEXTRIN (NCH) (WHEAT DEXTRIN) POWDER [Suspect]
     Indication: DIVERTICULITIS
     Dosage: 2 TSP, QD, ORAL
     Route: 048
     Dates: start: 20030101, end: 20081007
  2. BENEFIBER W/ WHEAT DEXTRIN (NCH) (WHEAT DEXTRIN) POWDER [Suspect]
     Indication: NUTRITIONAL SUPPORT
     Dosage: 2 TSP, QD, ORAL
     Route: 048
     Dates: start: 20030101, end: 20081007
  3. PLAVIX [Concomitant]
  4. ASPIRIN [Concomitant]
  5. LOVAZA [Concomitant]
  6. VITAMIN E [Concomitant]
  7. DIOVAN [Concomitant]
  8. METFORMIN HCL [Concomitant]

REACTIONS (9)
  - ABDOMINAL DISTENSION [None]
  - AORTIC VALVE REPLACEMENT [None]
  - CARDIAC FAILURE CONGESTIVE [None]
  - CHEST PAIN [None]
  - DIARRHOEA [None]
  - DYSPNOEA [None]
  - GAIT DISTURBANCE [None]
  - GASTROINTESTINAL INFECTION [None]
  - INTESTINAL OBSTRUCTION [None]
